FAERS Safety Report 5009769-9 (Version None)
Quarter: 2006Q2

REPORT INFORMATION
  Report Type: 
  Country: None (occurrence: None)
  Receive Date: 20060524
  Receipt Date: 20060210
  Transmission Date: 20061013
  Serious: Yes (Other)
  Sender: FDA-Public Use
  Company Number: JP-ROCHE-436663

PATIENT
  Age: 25 Year
  Sex: Female

DRUGS (3)
  1. TAMIFLU [Suspect]
     Route: 048
     Dates: start: 20060203, end: 20060207
  2. HUSTAZOL [Concomitant]
     Route: 048
     Dates: start: 20060203, end: 20060205
  3. LOXONIN [Concomitant]
     Dosage: TAKEN AS NEEDED.
     Route: 048
     Dates: start: 20060203

REACTIONS (5)
  - ABDOMINAL PAIN [None]
  - BODY TEMPERATURE DECREASED [None]
  - DEHYDRATION [None]
  - DIARRHOEA [None]
  - MELAENA [None]
